FAERS Safety Report 5234313-0 (Version None)
Quarter: 2007Q1

REPORT INFORMATION
  Report Type: 
  Country: None (occurrence: None)
  Receive Date: 20070207
  Receipt Date: 20070122
  Transmission Date: 20070707
  Serious: Yes (Hospitalization)
  Sender: FDA-Public Use
  Company Number: 2007PV028767

PATIENT
  Age: 42 Year
  Sex: Female
  Weight: 99.7913 kg

DRUGS (4)
  1. BYETTA [Suspect]
     Indication: DIABETES MELLITUS NON-INSULIN-DEPENDENT
     Dosage: 10 MCG; BID; SC;  5 MCG;BID; SC
     Route: 058
     Dates: start: 20050701, end: 20050701
  2. BYETTA [Suspect]
     Indication: DIABETES MELLITUS NON-INSULIN-DEPENDENT
     Dosage: 10 MCG; BID; SC;  5 MCG;BID; SC
     Route: 058
     Dates: start: 20050701
  3. METFORMIN HCL [Concomitant]
  4. SYNTHROID [Concomitant]

REACTIONS (1)
  - OVARIAN CYST [None]
